FAERS Safety Report 20548241 (Version 4)
Quarter: 2023Q1

REPORT INFORMATION
  Report Type: Report from Study
  Country: US (occurrence: US)
  Receive Date: 20220303
  Receipt Date: 20230207
  Transmission Date: 20230417
  Serious: Yes (Hospitalization)
  Sender: FDA-Public Use
  Company Number: US-TAKEDA-2022TUS014054

PATIENT
  Age: 15 Year
  Sex: Male

DRUGS (29)
  1. IDURSULFASE [Suspect]
     Active Substance: IDURSULFASE
     Indication: Mucopolysaccharidosis II
     Dosage: 0.5 MILLIGRAM/KILOGRAM, 1/WEEK
     Route: 042
     Dates: start: 20081219, end: 20120408
  2. IDURSULFASE [Suspect]
     Active Substance: IDURSULFASE
     Dosage: 0.5 MILLIGRAM/KILOGRAM, Q2WEEKS
     Route: 042
     Dates: start: 20151008
  3. IBUPROFEN [Concomitant]
     Active Substance: IBUPROFEN
     Indication: Pyrexia
     Dosage: UNK
     Route: 048
     Dates: start: 20090101
  4. PREDNISOLONE [Concomitant]
     Active Substance: PREDNISOLONE
     Indication: Infusion related reaction
     Dosage: UNK
     Route: 048
     Dates: start: 20090101, end: 20090309
  5. LIDOCAINE [Concomitant]
     Active Substance: LIDOCAINE
     Indication: Local anaesthesia
     Dosage: UNK
     Route: 061
     Dates: start: 20090716, end: 20170315
  6. ALBUTEROL [Concomitant]
     Active Substance: ALBUTEROL
     Indication: Mucopolysaccharidosis II
     Dosage: UNK
     Route: 055
     Dates: start: 20121221
  7. ALTEPLASE [Concomitant]
     Active Substance: ALTEPLASE
     Indication: Arteriovenous fistula occlusion
     Dosage: UNK
     Route: 042
     Dates: start: 20150102
  8. LORATADINE [Concomitant]
     Active Substance: LORATADINE
     Indication: Hypersensitivity
     Dosage: UNK
     Route: 048
     Dates: start: 20150303
  9. DIPHENHYDRAMINE [Concomitant]
     Active Substance: DIPHENHYDRAMINE
     Indication: Premedication
     Dosage: UNK
     Route: 048
     Dates: start: 20150407
  10. ACETAMINOPHEN [Concomitant]
     Active Substance: ACETAMINOPHEN
     Indication: Premedication
     Dosage: UNK
     Route: 048
     Dates: start: 20150407
  11. HEPARIN [Concomitant]
     Active Substance: HEPARIN SODIUM
     Indication: Prophylaxis
     Dosage: UNK
     Route: 042
     Dates: start: 20150415
  12. BUDESONIDE [Concomitant]
     Active Substance: BUDESONIDE
     Dosage: UNK
     Route: 055
     Dates: start: 20150512
  13. IPRATROPIUM [Concomitant]
     Active Substance: IPRATROPIUM
     Indication: Rhinorrhoea
     Dosage: UNK
     Route: 045
     Dates: start: 20150709, end: 20161207
  14. POLYETHYLENE GLYCOL [Concomitant]
     Active Substance: POLYETHYLENE GLYCOL
     Indication: Constipation
     Dosage: UNK
     Route: 048
     Dates: start: 20150908
  15. FLUTICASONE [Concomitant]
     Active Substance: FLUTICASONE
     Indication: Rhinitis
     Dosage: UNK
     Route: 045
     Dates: start: 20151001
  16. ROCEPHIN [Concomitant]
     Active Substance: CEFTRIAXONE SODIUM
     Indication: Antibiotic therapy
     Dosage: UNK
     Route: 042
     Dates: start: 20160817, end: 20160820
  17. BENADRYL [Concomitant]
     Active Substance: DIPHENHYDRAMINE HYDROCHLORIDE
     Indication: Antiallergic therapy
     Dosage: UNK
     Route: 042
     Dates: start: 20160817, end: 20160821
  18. AMOXICILLIN [Concomitant]
     Active Substance: AMOXICILLIN
     Indication: Pyrexia
     Dosage: UNK
     Route: 048
     Dates: start: 20160817, end: 20160818
  19. DEXTROSE [Concomitant]
     Active Substance: DEXTROSE
     Indication: Fluid replacement
     Dosage: UNK
     Route: 042
     Dates: start: 20160819, end: 20160821
  20. SODIUM CHLORIDE [Concomitant]
     Active Substance: SODIUM CHLORIDE
     Indication: Nasal congestion
     Dosage: UNK
     Route: 045
     Dates: start: 20160820, end: 20170317
  21. HYDROXYZINE [Concomitant]
     Active Substance: HYDROXYZINE HYDROCHLORIDE
     Indication: Anxiety
     Dosage: UNK
     Route: 048
     Dates: start: 20170118
  22. ACETAMINOPHEN [Concomitant]
     Active Substance: ACETAMINOPHEN
     Indication: Prophylaxis
     Dosage: UNK
     Route: 048
     Dates: start: 20170504
  23. AMOXICILLIN\CLAVULANIC ACID [Concomitant]
     Active Substance: AMOXICILLIN\CLAVULANIC ACID
     Indication: Parapharyngeal space infection
     Dosage: UNK
     Route: 048
     Dates: start: 20180112, end: 20180122
  24. CLOTRIMAZOLE [Concomitant]
     Active Substance: CLOTRIMAZOLE
     Indication: Dermatitis diaper
     Dosage: UNK
     Route: 061
     Dates: start: 20180112
  25. MICONAZOLE [Concomitant]
     Active Substance: MICONAZOLE
     Indication: Dermatitis diaper
     Dosage: UNK
     Route: 061
     Dates: start: 20180112
  26. SULFAMETHOXAZOLE\TRIMETHOPRIM [Concomitant]
     Active Substance: SULFAMETHOXAZOLE\TRIMETHOPRIM
     Indication: Parapharyngeal space infection
     Dosage: UNK
     Route: 048
     Dates: start: 20180112, end: 20180122
  27. BACTRIM [Concomitant]
     Active Substance: SULFAMETHOXAZOLE\TRIMETHOPRIM
     Indication: Pharyngeal inflammation
     Dosage: UNK
     Route: 048
     Dates: start: 20180116, end: 20180126
  28. AUGMENTIN [Concomitant]
     Active Substance: AMOXICILLIN\CLAVULANATE POTASSIUM
     Indication: Pharyngeal inflammation
     Dosage: UNK
     Route: 048
     Dates: start: 20180116
  29. LOTRIMIN [Concomitant]
     Active Substance: CLOTRIMAZOLE
     Indication: Pharyngeal inflammation
     Dosage: UNK
     Route: 061
     Dates: start: 20180116, end: 20180126

REACTIONS (1)
  - Lung infiltration [Recovered/Resolved with Sequelae]

NARRATIVE: CASE EVENT DATE: 20190120
